FAERS Safety Report 4945210-X (Version None)
Quarter: 2006Q1

REPORT INFORMATION
  Report Type: 
  Country: None (occurrence: None)
  Receive Date: 20060316
  Receipt Date: 20060308
  Transmission Date: 20060701
  Serious: Yes (Other)
  Sender: FDA-Public Use
  Company Number: IE-AVENTIS-200611502EU

PATIENT
  Sex: Male

DRUGS (4)
  1. ENOXAPARIN SODIUM [Suspect]
     Indication: PULMONARY EMBOLISM
     Dates: start: 20050101
  2. ENOXAPARIN SODIUM [Suspect]
     Dates: start: 20060101
  3. WARFARIN [Concomitant]
     Indication: ANTICOAGULANT THERAPY
     Dates: end: 20060101
  4. ALL OTHER THERAPEUTIC PRODUCTS [Concomitant]
     Indication: LUNG NEOPLASM MALIGNANT

REACTIONS (1)
  - METASTASES TO BONE [None]
